FAERS Safety Report 14354005 (Version 1)
Quarter: 2018Q1

REPORT INFORMATION
  Report Type: Spontaneous
  Country: DE (occurrence: DE)
  Receive Date: 20180105
  Receipt Date: 20180105
  Transmission Date: 20180509
  Serious: Yes (Other)
  Sender: FDA-Public Use
  Company Number: DE-CIPLA LTD.-2017DE30031

PATIENT

DRUGS (4)
  1. L-THYROXIN [Concomitant]
     Active Substance: LEVOTHYROXINE SODIUM
     Indication: HYPOTHYROIDISM
     Dosage: 50 ?G, DAILY, 100 [MG/4WK ], 0.-40.5. GESTATIONAL WEEK
     Route: 048
     Dates: start: 20160610, end: 20170322
  2. XEPLION [Concomitant]
     Active Substance: PALIPERIDONE PALMITATE
     Indication: SCHIZOPHRENIA
     Dosage: 100 MG, FOUR TIMES A WEEK, 100 MG  [MG/4WK ], 0.-5. GESTATIONAL WEEK
     Route: 030
  3. FOLIO FORTE (NEM) [Concomitant]
     Indication: PROPHYLAXIS OF NEURAL TUBE DEFECT
     Dosage: UNK, 100 [MG/4WK ], 9.3-39.5. GESTATIONAL
     Route: 048
  4. RISPERIDONE. [Suspect]
     Active Substance: RISPERIDONE
     Indication: SCHIZOPHRENIA
     Dosage: 3 MG, DALILY, 100 [MG/4WK ], 5.-40.5. GESTATIONAL WEEK
     Route: 048
     Dates: start: 20160715, end: 20170322

REACTIONS (2)
  - Gestational diabetes [Recovered/Resolved]
  - Exposure during pregnancy [Unknown]
